FAERS Safety Report 8026237-0 (Version None)
Quarter: 2012Q1

REPORT INFORMATION
  Report Type: 
  Country: None (occurrence: None)
  Receive Date: 20120105
  Receipt Date: 20111031
  Transmission Date: 20120608
  Serious: No
  Sender: FDA-Public Use
  Company Number: US-ABBOTT-11P-163-0870605-00

PATIENT
  Sex: Female
  Weight: 65.83 kg

DRUGS (3)
  1. SYNTHROID [Suspect]
     Indication: HYPOTHYROIDISM
     Dates: start: 20110801
  2. LEXAPRO [Concomitant]
     Indication: ANXIETY
  3. TOPAMAX [Concomitant]
     Indication: MIGRAINE PROPHYLAXIS

REACTIONS (4)
  - DRY SKIN [None]
  - FATIGUE [None]
  - ARTHRALGIA [None]
  - ALOPECIA [None]
